FAERS Safety Report 9698856 (Version 1)
Quarter: 2013Q4

REPORT INFORMATION
  Report Type: Spontaneous
  Country: US (occurrence: US)
  Receive Date: 20131120
  Receipt Date: 20131120
  Transmission Date: 20140711
  Serious: Yes (Hospitalization)
  Sender: FDA-Public Use
  Company Number: US-ROXANE LABORATORIES, INC.-2013-RO-01844RO

PATIENT
  Age: 64 Year
  Sex: Female
  Weight: 73 kg

DRUGS (8)
  1. PREDNISONE [Suspect]
     Indication: INTERSTITIAL LUNG DISEASE
     Dosage: 50 MG
     Dates: start: 19991015, end: 20030215
  2. PREDNISONE [Suspect]
     Indication: MICROSCOPIC POLYANGIITIS
     Dosage: 20 MG
     Dates: start: 20030215, end: 20070715
  3. PREDNISONE [Suspect]
     Dosage: 50 MG
     Dates: start: 20070715, end: 20071015
  4. PREDNISONE [Suspect]
     Dosage: 20 MG
     Dates: start: 20071015, end: 20111118
  5. PREDNISONE [Suspect]
     Dosage: 15 MG
     Dates: start: 20111118, end: 20120215
  6. PREDNISONE [Suspect]
     Dosage: 10 MG
     Dates: start: 20120215
  7. CYTOXAN [Concomitant]
     Indication: GRANULOMATOSIS WITH POLYANGIITIS
     Dosage: 25 MG
     Dates: start: 19991015, end: 20090615
  8. CYTOXAN [Concomitant]
     Indication: ANTI-NEUTROPHIL CYTOPLASMIC ANTIBODY POSITIVE VASCULITIS

REACTIONS (3)
  - Pleural effusion [Unknown]
  - Pneumonia [Unknown]
  - Weight increased [Unknown]
